FAERS Safety Report 10731964 (Version 2)
Quarter: 2015Q1

REPORT INFORMATION
  Report Type: Spontaneous
  Country: IT (occurrence: IT)
  Receive Date: 20150123
  Receipt Date: 20150225
  Transmission Date: 20150721
  Serious: Yes (Hospitalization)
  Sender: FDA-Public Use
  Company Number: PHHY2015IT006083

PATIENT
  Age: 23 Year
  Sex: Male

DRUGS (1)
  1. GILENYA [Suspect]
     Active Substance: FINGOLIMOD HYDROCHLORIDE
     Indication: PRODUCT USED FOR UNKNOWN INDICATION
     Route: 065
     Dates: start: 20141022

REACTIONS (3)
  - Gait disturbance [Unknown]
  - Multiple sclerosis relapse [Unknown]
  - Paraparesis [Unknown]

NARRATIVE: CASE EVENT DATE: 201411
